FAERS Safety Report 7387607-7 (Version None)
Quarter: 2011Q1

REPORT INFORMATION
  Report Type: 
  Country: None (occurrence: None)
  Receive Date: 20110331
  Receipt Date: 20110325
  Transmission Date: 20110831
  Serious: Yes (Hospitalization, Other)
  Sender: FDA-Public Use
  Company Number: DE-ABBOTT-10P-062-0629884-00

PATIENT
  Sex: Male
  Weight: 65 kg

DRUGS (10)
  1. NEXIUM [Concomitant]
     Indication: RHEUMATOID ARTHRITIS
  2. HUMIRA [Suspect]
     Indication: RHEUMATOID ARTHRITIS
     Route: 058
     Dates: start: 20080227, end: 20080507
  3. VISINE EYE DROPS [Concomitant]
     Indication: PRODUCT USED FOR UNKNOWN INDICATION
     Dates: start: 20080411
  4. PREDNISOLONE [Concomitant]
     Indication: RHEUMATOID ARTHRITIS
     Dosage: ALTERNATING 5 AND 10 MG
     Dates: start: 20080604, end: 20080608
  5. PREDNISOLONE [Concomitant]
  6. QUENSYL [Concomitant]
     Indication: PRODUCT USED FOR UNKNOWN INDICATION
  7. CALCILAC [Concomitant]
     Indication: PRODUCT USED FOR UNKNOWN INDICATION
  8. METHOTREXATE [Concomitant]
     Indication: RHEUMATOID ARTHRITIS
     Route: 058
     Dates: start: 20080318, end: 20080506
  9. FERROSANOL [Concomitant]
     Indication: PRODUCT USED FOR UNKNOWN INDICATION
  10. REWODINA [Concomitant]
     Indication: PRODUCT USED FOR UNKNOWN INDICATION

REACTIONS (7)
  - ARTHROPATHY [None]
  - SARCOIDOSIS [None]
  - ANGIOTENSIN CONVERTING ENZYME INCREASED [None]
  - METASTASES TO PLEURA [None]
  - LYMPHADENOPATHY [None]
  - CUTANEOUS SARCOIDOSIS [None]
  - PNEUMONIA CHLAMYDIAL [None]
